FAERS Safety Report 4504209-8 (Version None)
Quarter: 2004Q4

REPORT INFORMATION
  Report Type: 
  Country: None (occurrence: None)
  Receive Date: 20041117
  Receipt Date: 20041105
  Transmission Date: 20050328
  Serious: Yes (Hospitalization)
  Sender: FDA-Public Use
  Company Number: 2004089699

PATIENT
  Sex: Female
  Weight: 122.4712 kg

DRUGS (5)
  1. ROLAIDS EXTRA STRENGTH (MAGNESIUM HYDROXIDE, CALCIUM CARBONATE) [Suspect]
     Indication: DYSPEPSIA
     Dosage: 2 TABLETS 1-2 TIMES QD PRN, ORAL
     Route: 048
     Dates: end: 20041105
  2. IRBESARTAN (IRBERSARTAN) [Concomitant]
  3. LEVOTHYROXINE SODIUM [Concomitant]
  4. ATENOLOL [Concomitant]
  5. ASPIRIN [Concomitant]

REACTIONS (1)
  - KNEE ARTHROPLASTY [None]
